FAERS Safety Report 9363013 (Version 1)
Quarter: 2013Q2

REPORT INFORMATION
  Report Type: Spontaneous
  Country: CH (occurrence: CH)
  Receive Date: 20130624
  Receipt Date: 20130624
  Transmission Date: 20140414
  Serious: Yes (Death)
  Sender: FDA-Public Use
  Company Number: CH-ROCHE-1240230

PATIENT
  Age: 33 Year
  Sex: Female

DRUGS (5)
  1. ACTILYSE [Suspect]
     Indication: PULMONARY EMBOLISM
     Route: 065
     Dates: start: 20121212, end: 20121212
  2. ETHINYL ESTRADIOL/NORETHINDRONE ACETATE [Suspect]
     Indication: CONTRACEPTION
     Route: 048
     Dates: end: 20121212
  3. HEPARIN [Suspect]
     Indication: PULMONARY EMBOLISM
     Dosage: 27500 U
     Route: 065
  4. BACLOFEN [Concomitant]
     Route: 048
  5. BOTOX [Concomitant]
     Route: 030
     Dates: start: 201211, end: 201211

REACTIONS (6)
  - Pulmonary embolism [Fatal]
  - Circulatory collapse [Fatal]
  - Brain hypoxia [Fatal]
  - Intra-abdominal haemorrhage [Fatal]
  - Cardiovascular disorder [Fatal]
  - Haemoglobin decreased [Fatal]
